FAERS Safety Report 7323001-2 (Version None)
Quarter: 2011Q1

REPORT INFORMATION
  Report Type: 
  Country: None (occurrence: None)
  Receive Date: 20110301
  Receipt Date: 20070709
  Transmission Date: 20110831
  Serious: Yes (Death, Other)
  Sender: FDA-Public Use
  Company Number: US-BAYER-200712158BWH

PATIENT
  Sex: Male
  Weight: 59.2 kg

DRUGS (16)
  1. LOTREL [Concomitant]
     Indication: BLOOD PRESSURE MANAGEMENT
  2. NEO-SYNEPHRINOL [Concomitant]
     Dosage: UNK
     Route: 042
     Dates: start: 20030314
  3. ASPIRIN [Concomitant]
     Dosage: 325 MG, UNK
     Route: 048
  4. TRASYLOL [Suspect]
     Indication: AORTIC VALVE REPLACEMENT
     Dosage: 100 ML, ONCE
     Dates: start: 20030314, end: 20030314
  5. ATENOLOL [Concomitant]
     Dosage: 25 MG, UNK
     Route: 048
  6. GLUCOTROL XL [Concomitant]
     Indication: TYPE 2 DIABETES MELLITUS
     Dosage: 5 MG, BID
     Route: 048
  7. MAGNESIUM SULFATE [Concomitant]
     Dosage: 2 G, UNK
     Route: 042
     Dates: start: 20030314
  8. HEPARIN [Concomitant]
     Dosage: 27000 U, UNK
     Route: 042
  9. TRASYLOL [Suspect]
     Indication: CORONARY ARTERY BYPASS
     Dosage: 50 ML, Q1HR
     Route: 042
     Dates: start: 20030314, end: 20030314
  10. AVANDIA [Concomitant]
     Indication: TYPE 2 DIABETES MELLITUS
     Dosage: 48 UNK, UNK
  11. ZANTAC [Concomitant]
     Indication: DYSPEPSIA
     Route: 048
  12. PROTAMINE SULFATE [Concomitant]
     Dosage: 230 MG, UNK
     Route: 042
     Dates: start: 20030314
  13. ISOSORBIDE MONONITRATE [Concomitant]
     Indication: BLOOD PRESSURE MANAGEMENT
     Dosage: 30 MG, UNK
     Route: 048
  14. ETOMIDATE [Concomitant]
     Dosage: UNK
     Route: 042
     Dates: start: 20030314
  15. VERSED [Concomitant]
     Dosage: 5 ML, UNK
     Route: 042
     Dates: start: 20030314
  16. SODIUM BICARBONATE [Concomitant]
     Dosage: 15 MEQ, UNK
     Route: 042
     Dates: start: 20030314

REACTIONS (10)
  - UNEVALUABLE EVENT [None]
  - DEPRESSION [None]
  - ANHEDONIA [None]
  - INJURY [None]
  - EMOTIONAL DISTRESS [None]
  - FEAR [None]
  - PAIN [None]
  - RENAL FAILURE [None]
  - DEATH [None]
  - ANXIETY [None]
